FAERS Safety Report 5421160-X (Version None)
Quarter: 2007Q3

REPORT INFORMATION
  Report Type: 
  Country: None (occurrence: None)
  Receive Date: 20070719
  Receipt Date: 20070418
  Transmission Date: 20080115
  Serious: Yes (Other)
  Sender: FDA-Public Use
  Company Number: HQWYE683519APR07

PATIENT
  Age: 26 Year
  Sex: Female
  Weight: 90.8 kg

DRUGS (2)
  1. ADVIL [Suspect]
     Indication: HEADACHE
     Dosage: 2 CAPLETS X 1, ORAL 2 CAPLETS AT BEDTIME, ORAL
     Route: 048
     Dates: start: 20070401, end: 20070401
  2. ADVIL [Suspect]
     Indication: HEADACHE
     Dosage: 2 CAPLETS X 1, ORAL 2 CAPLETS AT BEDTIME, ORAL
     Route: 048
     Dates: start: 20070406, end: 20070406

REACTIONS (7)
  - HYPERSENSITIVITY [None]
  - LIP SWELLING [None]
  - RASH ERYTHEMATOUS [None]
  - RASH GENERALISED [None]
  - RASH PRURITIC [None]
  - SWELLING FACE [None]
  - URTICARIA [None]
